FAERS Safety Report 9415641 (Version 1)
Quarter: 2013Q3

REPORT INFORMATION
  Report Type: Spontaneous
  Country: US (occurrence: US)
  Receive Date: 20130723
  Receipt Date: 20130723
  Transmission Date: 20140515
  Serious: No
  Sender: FDA-Public Use
  Company Number: US-VERTEX PHARMACEUTICALS INC-2013-008144

PATIENT
  Sex: Female
  Weight: 57 kg

DRUGS (7)
  1. KALYDECO [Suspect]
     Indication: CYSTIC FIBROSIS
     Dosage: 150 MG, BID
     Dates: start: 201204, end: 201204
  2. LIPASE [Concomitant]
     Indication: CYSTIC FIBROSIS
     Dosage: 2100 UNITS WITH MEAL
     Dates: start: 1983
  3. ALBUTEROL [Concomitant]
     Indication: CYSTIC FIBROSIS
     Dosage: UNK, TID
     Dates: start: 1998
  4. PULMOZYME [Concomitant]
     Indication: CYSTIC FIBROSIS
     Dosage: UNK, QD
     Dates: start: 2003
  5. HYPERTONIC SALINE SOLUTION [Concomitant]
     Indication: CYSTIC FIBROSIS
     Dosage: UNK, QD
     Dates: start: 2006
  6. TOBI [Concomitant]
     Indication: CYSTIC FIBROSIS
     Dosage: UNK, BID EVERY OTHER MONTH
     Dates: start: 2003
  7. AQUADEKS [Concomitant]
     Indication: CYSTIC FIBROSIS

REACTIONS (1)
  - Off label use [Unknown]
